FAERS Safety Report 4788575-4 (Version None)
Quarter: 2005Q4

REPORT INFORMATION
  Report Type: 
  Country: None (occurrence: None)
  Receive Date: 20051005
  Receipt Date: 20051005
  Transmission Date: 20060501
  Serious: Yes (Hospitalization)
  Sender: FDA-Public Use
  Company Number: None

PATIENT
  Age: 24 Year
  Sex: Male
  Weight: 131.5431 kg

DRUGS (4)
  1. WARFARIN SODIUM [Suspect]
     Indication: THROMBOSIS PROPHYLAXIS
     Dosage: 30MG QD / EXCEPT  20 MG M/W/F
  2. INSULIN [Concomitant]
  3. DOXYCYCLINE [Concomitant]
  4. AMLODIPINE [Concomitant]

REACTIONS (2)
  - HAEMATURIA [None]
  - INTERNATIONAL NORMALISED RATIO INCREASED [None]
